FAERS Safety Report 5997284-5 (Version None)
Quarter: 2008Q4

REPORT INFORMATION
  Report Type: 
  Country: None (occurrence: None)
  Receive Date: 20081212
  Receipt Date: 20081107
  Transmission Date: 20090506
  Serious: No
  Sender: FDA-Public Use
  Company Number: US-ABBOTT-08P-163-0486840-00

PATIENT
  Sex: Female

DRUGS (4)
  1. HUMIRA [Suspect]
     Indication: PSORIASIS
     Route: 058
  2. MEDROXYPROGESTERONE ACETATE [Concomitant]
     Indication: CONTRACEPTION
  3. CARDEZIEM [Concomitant]
     Indication: HYPERTENSION
  4. METOPROLOL SUCCINATE [Concomitant]
     Indication: HEART RATE

REACTIONS (4)
  - NASAL CONGESTION [None]
  - RHINORRHOEA [None]
  - SINUS DISORDER [None]
  - THROAT IRRITATION [None]
